FAERS Safety Report 6963263-4 (Version None)
Quarter: 2010Q3

REPORT INFORMATION
  Report Type: 
  Country: None (occurrence: None)
  Receive Date: 20100902
  Receipt Date: 20100824
  Transmission Date: 20110219
  Serious: Yes (Other)
  Sender: FDA-Public Use
  Company Number: US-MERCK-1008USA03241

PATIENT
  Age: 43 Year
  Sex: Female
  Weight: 125 kg

DRUGS (27)
  1. PRINIVIL [Suspect]
     Indication: BLOOD PRESSURE INCREASED
     Route: 048
     Dates: start: 20060101
  2. LYRICA [Suspect]
     Indication: FIBROMYALGIA
     Route: 048
     Dates: start: 20070101
  3. LYRICA [Suspect]
     Route: 048
  4. FLUTICASONE PROPIONATE [Suspect]
     Indication: NASAL SEPTUM DEVIATION
     Route: 065
     Dates: start: 20100101
  5. ZOCOR [Suspect]
     Indication: BLOOD CHOLESTEROL INCREASED
     Route: 048
     Dates: start: 20070101
  6. MELOXICAM [Suspect]
     Indication: PAIN
     Route: 048
  7. CETIRIZINE HYDROCHLORIDE [Suspect]
     Indication: HYPERSENSITIVITY
     Route: 048
  8. ASPIRIN [Suspect]
     Indication: CARDIAC DISORDER
     Route: 048
  9. LEVOTHYROXINE SODIUM [Suspect]
     Indication: THYROID DISORDER
     Route: 048
     Dates: start: 20060101
  10. TEGRETOL [Suspect]
     Indication: MOOD SWINGS
     Route: 048
  11. TEGRETOL [Suspect]
     Route: 048
  12. TEGRETOL [Suspect]
     Indication: PERSONALITY DISORDER
     Route: 048
  13. TEGRETOL [Suspect]
     Route: 048
  14. PROVIGIL [Suspect]
     Indication: SLEEP APNOEA SYNDROME
     Route: 048
  15. PROVIGIL [Suspect]
     Route: 048
  16. PROPRANOLOL HYDROCHLORIDE [Suspect]
     Indication: BLOOD PRESSURE INCREASED
     Route: 048
     Dates: start: 20060101
  17. METHOCARBAMOL [Suspect]
     Indication: PAIN
     Route: 048
  18. BACLOFEN [Suspect]
     Indication: RESTLESS LEGS SYNDROME
     Route: 048
  19. METHADOSE [Suspect]
     Indication: PAIN
     Route: 048
  20. CYMBALTA [Suspect]
     Indication: DEPRESSION
     Route: 048
     Dates: start: 19970101
  21. OMEPRAZOLE [Suspect]
     Indication: GASTROOESOPHAGEAL REFLUX DISEASE
     Route: 048
  22. LIDODERM [Suspect]
     Indication: MYALGIA
     Route: 065
     Dates: start: 20090101
  23. INSULIN DETEMIR [Suspect]
     Indication: DIABETES MELLITUS
     Route: 058
  24. INSULIN DETEMIR [Suspect]
     Route: 058
  25. MIRALAX [Suspect]
     Indication: CONSTIPATION
     Route: 048
  26. OMEGA-3 MARINE TRIGLYCERIDES [Suspect]
     Route: 065
  27. VITAMIN E [Suspect]
     Route: 065

REACTIONS (2)
  - CONVULSION [None]
  - FIBROMYALGIA [None]
